FAERS Safety Report 6369913-8 (Version None)
Quarter: 2009Q3

REPORT INFORMATION
  Report Type: 
  Country: None (occurrence: None)
  Receive Date: 20090923
  Receipt Date: 20080617
  Transmission Date: 20100115
  Serious: Yes (Hospitalization)
  Sender: FDA-Public Use
  Company Number: US-ASTRAZENECA-2006UW11033

PATIENT
  Age: 13080 Day
  Sex: Male
  Weight: 81.6 kg

DRUGS (12)
  1. SEROQUEL [Suspect]
     Indication: ANXIETY
     Route: 048
  2. SEROQUEL [Suspect]
     Indication: DEPRESSION
     Route: 048
  3. SEROQUEL [Suspect]
     Indication: SCHIZOPHRENIA
     Route: 048
  4. SEROQUEL [Suspect]
     Dosage: 100 - 300 MG
     Route: 048
     Dates: start: 20050531
  5. SEROQUEL [Suspect]
     Dosage: 100 - 300 MG
     Route: 048
     Dates: start: 20050531
  6. SEROQUEL [Suspect]
     Dosage: 100 - 300 MG
     Route: 048
     Dates: start: 20050531
  7. ALBUTEROL [Concomitant]
  8. FLOVENT [Concomitant]
  9. WELLBUTRIN [Concomitant]
  10. FLUOXETINE [Concomitant]
  11. AMITRIPTYLINE [Concomitant]
  12. LITHOBID [Concomitant]

REACTIONS (4)
  - HYPERGLYCAEMIA [None]
  - HYPERHIDROSIS [None]
  - PSYCHOTIC DISORDER [None]
  - TREMOR [None]
